FAERS Safety Report 4521230-4 (Version None)
Quarter: 2004Q4

REPORT INFORMATION
  Report Type: 
  Country: None (occurrence: None)
  Receive Date: 20041206
  Receipt Date: 20041119
  Transmission Date: 20050328
  Serious: Yes (Other)
  Sender: FDA-Public Use
  Company Number: 2004-BP-12208RO

PATIENT
  Age: 33 Year
  Sex: Male

DRUGS (8)
  1. METHADONE HCL [Suspect]
     Indication: DRUG THERAPY
     Dosage: 80 MG, PO
     Route: 048
  2. CITALOPRAM [Suspect]
     Dosage: 20 MG
  3. NIFEDIPINE [Suspect]
     Dosage: 60 MG
  4. BUTAMIRATE (BUTAMIRATE) [Concomitant]
  5. MIDAZOLAM HCL [Concomitant]
  6. OMEPRAZOLE [Concomitant]
  7. OXAZEPAM [Concomitant]
  8. ROFECOXIB [Concomitant]

REACTIONS (3)
  - DRUG INTERACTION [None]
  - ELECTROCARDIOGRAM QT CORRECTED INTERVAL PROLONGED [None]
  - VENTRICULAR TACHYCARDIA [None]
